FAERS Safety Report 15396507 (Version 1)
Quarter: 2018Q3

REPORT INFORMATION
  Report Type: Report from Study
  Country: GB (occurrence: GB)
  Receive Date: 20180918
  Receipt Date: 20180918
  Transmission Date: 20181010
  Serious: Yes (Other)
  Sender: FDA-Public Use
  Company Number: GB-PFIZER INC-2018371558

PATIENT
  Sex: Female

DRUGS (3)
  1. TEGRETOL [Concomitant]
     Active Substance: CARBAMAZEPINE
     Dosage: UNK
  2. KEPPRA [Suspect]
     Active Substance: LEVETIRACETAM
     Dosage: 200 MG
  3. LEVETIRACETAM. [Suspect]
     Active Substance: LEVETIRACETAM
     Dosage: 1000 MG, UNK

REACTIONS (3)
  - Memory impairment [Unknown]
  - Prescribed underdose [Unknown]
  - Epilepsy [Unknown]
